FAERS Safety Report 13158517 (Version 3)
Quarter: 2017Q2

REPORT INFORMATION
  Report Type: Spontaneous
  Country: FR (occurrence: FR)
  Receive Date: 20170127
  Receipt Date: 20170419
  Transmission Date: 20170830
  Serious: Yes (Death, Hospitalization)
  Sender: FDA-Public Use
  Company Number: FR-SA-2017SA012707

PATIENT
  Age: 65 Year
  Sex: Male

DRUGS (12)
  1. RIFADINE [Suspect]
     Active Substance: RIFAMPIN
     Indication: ENDOCARDITIS STAPHYLOCOCCAL
     Route: 042
     Dates: start: 20161129, end: 20161209
  2. MERONEM [Concomitant]
     Active Substance: MEROPENEM
  3. AMIKLIN [Concomitant]
     Active Substance: AMIKACIN SULFATE
  4. DAFALGAN [Concomitant]
     Active Substance: ACETAMINOPHEN
  5. TAVANIC [Concomitant]
     Active Substance: LEVOFLOXACIN
  6. CEFAZOLINE [Suspect]
     Active Substance: CEFAZOLIN SODIUM
     Indication: ENDOCARDITIS STAPHYLOCOCCAL
     Route: 042
     Dates: start: 20161128, end: 20161205
  7. INEXIUM [Concomitant]
     Active Substance: ESOMEPRAZOLE
  8. CUBICIN [Concomitant]
     Active Substance: DAPTOMYCIN
  9. TAZOCILLINE [Concomitant]
     Active Substance: PIPERACILLIN SODIUM\TAZOBACTAM SODIUM
  10. KARDEGIC [Concomitant]
     Active Substance: ASPIRIN LYSINE
     Indication: THROMBOSIS PROPHYLAXIS
     Route: 048
     Dates: start: 20161207, end: 20161223
  11. LOVENOX [Concomitant]
     Active Substance: ENOXAPARIN SODIUM
     Indication: THROMBOSIS PROPHYLAXIS
     Route: 058
     Dates: start: 20161209, end: 20161209
  12. FOSFOCIN [Concomitant]

REACTIONS (3)
  - Coagulopathy [Fatal]
  - Pericardial effusion [Fatal]
  - Cholestasis [Not Recovered/Not Resolved]

NARRATIVE: CASE EVENT DATE: 20161129
